FAERS Safety Report 9641761 (Version 2)
Quarter: 2013Q4

REPORT INFORMATION
  Report Type: Report from Study
  Country: US (occurrence: US)
  Receive Date: 20131023
  Receipt Date: 20131029
  Transmission Date: 20140711
  Serious: Yes (Other)
  Sender: FDA-Public Use
  Company Number: US-ABBVIE-13P-163-1159423-00

PATIENT
  Age: 51 Year
  Sex: Female

DRUGS (2)
  1. HUMIRA [Suspect]
     Indication: CROHN^S DISEASE
     Dosage: STANDARD LOADING DOSE
     Dates: start: 201309
  2. NORCO [Suspect]
     Indication: PROCEDURAL PAIN
     Dates: start: 201310

REACTIONS (4)
  - Trigger finger [Not Recovered/Not Resolved]
  - Hyperhidrosis [Unknown]
  - Pain [Not Recovered/Not Resolved]
  - Nausea [Not Recovered/Not Resolved]
